FAERS Safety Report 8111181-0 (Version None)
Quarter: 2012Q1

REPORT INFORMATION
  Report Type: 
  Country: None (occurrence: None)
  Receive Date: 20120203
  Receipt Date: 20110608
  Transmission Date: 20120608
  Serious: No
  Sender: FDA-Public Use
  Company Number: US-GLAXOSMITHKLINE-A0930788A

PATIENT
  Age: 53 Year
  Sex: Female

DRUGS (4)
  1. LAMOTRIGINE [Suspect]
     Indication: NEURALGIA
     Dosage: 200MG UNKNOWN
     Route: 048
     Dates: start: 20101201, end: 20101201
  2. CLONAZEPAM [Concomitant]
  3. LAMICTAL [Suspect]
     Indication: NEURALGIA
     Route: 048
     Dates: start: 20110501
  4. LAMICTAL [Suspect]
     Route: 048
     Dates: start: 20110501, end: 20110501

REACTIONS (8)
  - PARAESTHESIA [None]
  - VISION BLURRED [None]
  - THERAPEUTIC RESPONSE UNEXPECTED [None]
  - DRUG INEFFECTIVE [None]
  - PRURITUS [None]
  - MUSCLE TWITCHING [None]
  - INSOMNIA [None]
  - OVERDOSE [None]
